FAERS Safety Report 15630862 (Version 2)
Quarter: 2018Q4

REPORT INFORMATION
  Report Type: Spontaneous
  Country: IL (occurrence: IL)
  Receive Date: 20181119
  Receipt Date: 20181205
  Transmission Date: 20190205
  Serious: Yes (Other)
  Sender: FDA-Public Use
  Company Number: IL-ABBVIE-18K-082-2557664-00

PATIENT
  Sex: Male

DRUGS (1)
  1. HUMIRA [Suspect]
     Active Substance: ADALIMUMAB
     Indication: ANKYLOSING SPONDYLITIS
     Route: 058

REACTIONS (4)
  - Ankylosing spondylitis [Unknown]
  - Platelet aggregation abnormal [Unknown]
  - Thrombocytosis [Unknown]
  - Thrombocytopenia [Unknown]
